FAERS Safety Report 9416305 (Version 2)
Quarter: 2013Q4

REPORT INFORMATION
  Report Type: Spontaneous
  Country: IE (occurrence: IE)
  Receive Date: 20130724
  Receipt Date: 20131004
  Transmission Date: 20140711
  Serious: Yes (Hospitalization, Other)
  Sender: FDA-Public Use
  Company Number: IE-BRISTOL-MYERS SQUIBB COMPANY-19127612

PATIENT
  Age: 52 Year
  Sex: Male

DRUGS (6)
  1. YERVOY [Suspect]
     Indication: MALIGNANT MELANOMA
     Dosage: 275MG
     Route: 042
     Dates: start: 20130222, end: 20130426
  2. MEFENAMIC ACID [Suspect]
     Route: 048
  3. LACTULOSE [Concomitant]
  4. PROTIUM [Concomitant]
  5. CYCLIZINE [Concomitant]
     Route: 048
  6. ZIMOVANE [Concomitant]
     Route: 048

REACTIONS (5)
  - Upper gastrointestinal haemorrhage [Unknown]
  - Anaemia [Unknown]
  - Melaena [Unknown]
  - Malignant neoplasm progression [Unknown]
  - Diarrhoea [Recovering/Resolving]
